FAERS Safety Report 21410693 (Version 1)
Quarter: 2022Q4

REPORT INFORMATION
  Report Type: Report from Study
  Country: US (occurrence: None)
  Receive Date: 20221005
  Receipt Date: 20221005
  Transmission Date: 20230113
  Serious: Yes (Other)
  Sender: FDA-Public Use
  Company Number: 2022A287041

PATIENT
  Age: 16352 Day
  Sex: Female

DRUGS (3)
  1. FASENRA [Suspect]
     Active Substance: BENRALIZUMAB
     Indication: Asthma
     Dosage: 30MG/ML EVERY EIGHT WEEKS
     Route: 058
     Dates: start: 202204
  2. FASENRA [Suspect]
     Active Substance: BENRALIZUMAB
     Indication: Asthma
     Dosage: 30MG/ML EVERY EIGHT WEEKS
     Route: 058
     Dates: start: 202205
  3. TAKHZYRO [Concomitant]
     Active Substance: LANADELUMAB-FLYO

REACTIONS (5)
  - Hereditary angioedema [Unknown]
  - Peripheral swelling [Recovered/Resolved]
  - COVID-19 [Not Recovered/Not Resolved]
  - Influenza [Not Recovered/Not Resolved]
  - Asthma [Unknown]

NARRATIVE: CASE EVENT DATE: 20220829
